FAERS Safety Report 8125586-5 (Version None)
Quarter: 2012Q1

REPORT INFORMATION
  Report Type: 
  Country: None (occurrence: None)
  Receive Date: 20120209
  Receipt Date: 20120207
  Transmission Date: 20120608
  Serious: Yes (Death, Hospitalization, Other)
  Sender: FDA-Public Use
  Company Number: GB-PFIZER INC-2011168138

PATIENT
  Age: 21 Year
  Sex: Male
  Weight: 120 kg

DRUGS (6)
  1. FLUOXETINE [Suspect]
     Indication: DEPRESSED MOOD
  2. LYRICA [Suspect]
     Indication: OBSESSIVE-COMPULSIVE DISORDER
     Dosage: 225 MG, 2X/DAY
     Route: 048
     Dates: start: 20091101, end: 20110705
  3. LYRICA [Suspect]
     Indication: ANXIETY
  4. FLUOXETINE [Suspect]
     Indication: OBSESSIVE-COMPULSIVE DISORDER
     Dosage: 60 MG, 1X/DAY
     Route: 048
     Dates: start: 20091101, end: 20110705
  5. SEROQUEL [Suspect]
     Indication: PSYCHOTIC DISORDER
  6. SEROQUEL [Suspect]
     Indication: OBSESSIVE-COMPULSIVE DISORDER
     Dosage: 800 MG, 1X/DAY
     Route: 048
     Dates: start: 20091101, end: 20110705

REACTIONS (9)
  - HYPERPYREXIA [None]
  - RHABDOMYOLYSIS [None]
  - VOMITING [None]
  - PANCREATITIS NECROTISING [None]
  - ABDOMINAL PAIN [None]
  - PYREXIA [None]
  - MULTI-ORGAN FAILURE [None]
  - SEPTIC SHOCK [None]
  - PANCREATITIS ACUTE [None]
